FAERS Safety Report 8335978-7 (Version None)
Quarter: 2012Q2

REPORT INFORMATION
  Report Type: 
  Country: None (occurrence: None)
  Receive Date: 20120504
  Receipt Date: 20120427
  Transmission Date: 20120825
  Serious: Yes (Other)
  Sender: FDA-Public Use
  Company Number: US-PFIZER INC-2012105149

PATIENT
  Sex: Female

DRUGS (2)
  1. LYRICA [Suspect]
     Indication: HERPES ZOSTER
     Dosage: UNK
     Dates: start: 20120101
  2. LYRICA [Suspect]
     Indication: POST HERPETIC NEURALGIA
     Dosage: UNK
     Dates: start: 20111001, end: 20120201

REACTIONS (9)
  - INSOMNIA [None]
  - HERPES ZOSTER [None]
  - VISION BLURRED [None]
  - VISUAL ACUITY REDUCED [None]
  - DRY MOUTH [None]
  - VISUAL IMPAIRMENT [None]
  - BALANCE DISORDER [None]
  - PAIN [None]
  - GAIT DISTURBANCE [None]
